FAERS Safety Report 21658247 (Version 2)
Quarter: 2023Q1

REPORT INFORMATION
  Report Type: Report from Study
  Country: JP (occurrence: None)
  Receive Date: 20221129
  Receipt Date: 20230109
  Transmission Date: 20230418
  Serious: Yes (Hospitalization)
  Sender: FDA-Public Use
  Company Number: JP-Merck Healthcare KGaA-9224849

PATIENT
  Age: 49 Year
  Sex: Male
  Weight: 75 kg

DRUGS (10)
  1. BAVENCIO [Suspect]
     Active Substance: AVELUMAB
     Indication: Metastatic renal cell carcinoma
     Route: 041
     Dates: start: 20200727
  2. BAVENCIO [Suspect]
     Active Substance: AVELUMAB
     Route: 041
     Dates: start: 20201021, end: 20210217
  3. INLYTA [Suspect]
     Active Substance: AXITINIB
     Indication: Metastatic renal cell carcinoma
     Route: 048
     Dates: start: 20200727, end: 20200812
  4. INLYTA [Suspect]
     Active Substance: AXITINIB
     Route: 048
     Dates: start: 20200813, end: 20201007
  5. INLYTA [Suspect]
     Active Substance: AXITINIB
     Route: 048
     Dates: start: 20201008, end: 20201021
  6. INLYTA [Suspect]
     Active Substance: AXITINIB
     Route: 048
     Dates: start: 20201022, end: 20210303
  7. ACETAMINOPHEN [Concomitant]
     Active Substance: ACETAMINOPHEN
     Indication: Premedication
     Route: 048
     Dates: start: 20200727
  8. ACETAMINOPHEN [Concomitant]
     Active Substance: ACETAMINOPHEN
     Route: 048
     Dates: start: 20201021, end: 20210217
  9. DIPHENHYDRAMINE [Concomitant]
     Active Substance: DIPHENHYDRAMINE
     Indication: Premedication
     Route: 048
     Dates: start: 20200727
  10. DIPHENHYDRAMINE [Concomitant]
     Active Substance: DIPHENHYDRAMINE
     Route: 048
     Dates: start: 20201021, end: 20210217

REACTIONS (5)
  - Pemphigus [Unknown]
  - Hypothyroidism [Not Recovered/Not Resolved]
  - Stomatitis [Not Recovered/Not Resolved]
  - Palmar-plantar erythrodysaesthesia syndrome [Unknown]
  - Hypertension [Unknown]

NARRATIVE: CASE EVENT DATE: 20200812
